FAERS Safety Report 7398739-1 (Version None)
Quarter: 2011Q2

REPORT INFORMATION
  Report Type: 
  Country: None (occurrence: None)
  Receive Date: 20110401
  Receipt Date: 20110401
  Transmission Date: 20111010
  Serious: Yes (Life-Threatening, Hospitalization)
  Sender: FDA-Public Use
  Company Number: None

PATIENT
  Age: 24 Year
  Sex: Male
  Weight: 47.76 kg

DRUGS (1)
  1. LAMICTAL [Suspect]

REACTIONS (1)
  - STEVENS-JOHNSON SYNDROME [None]
